FAERS Safety Report 7655110-2 (Version None)
Quarter: 2011Q3

REPORT INFORMATION
  Report Type: 
  Country: None (occurrence: None)
  Receive Date: 20110804
  Receipt Date: 20110722
  Transmission Date: 20111222
  Serious: Yes (Other)
  Sender: FDA-Public Use
  Company Number: CA-JNJFOC-20110604312

PATIENT
  Sex: Female
  Weight: 55.3 kg

DRUGS (3)
  1. REMICADE [Suspect]
     Indication: COLITIS ULCERATIVE
     Route: 042
     Dates: start: 20100226
  2. MESALAMINE [Concomitant]
     Route: 065
  3. OTHER THERAPEUTIC MEDICATION [Concomitant]
     Route: 065

REACTIONS (1)
  - ENDODONTIC PROCEDURE [None]
